FAERS Safety Report 11651454 (Version 2)
Quarter: 2015Q4

REPORT INFORMATION
  Report Type: Report from Study
  Country: US (occurrence: US)
  Receive Date: 20151022
  Receipt Date: 20151029
  Transmission Date: 20160304
  Serious: Yes (Hospitalization)
  Sender: FDA-Public Use
  Company Number: US-GILEAD-2015-0177621

PATIENT
  Age: 56 Year
  Sex: Male

DRUGS (8)
  1. METOPROLOL [Concomitant]
     Active Substance: METOPROLOL
  2. NOVOLOG [Concomitant]
     Active Substance: INSULIN ASPART
  3. OXYCODONE [Concomitant]
     Active Substance: OXYCODONE
  4. LASIX [Concomitant]
     Active Substance: FUROSEMIDE
  5. OXYTOCIN. [Concomitant]
     Active Substance: OXYTOCIN
  6. AMBRISENTAN [Suspect]
     Active Substance: AMBRISENTAN
     Indication: PORTOPULMONARY HYPERTENSION
     Dosage: 10 MG, QD
     Route: 065
     Dates: start: 20140509
  7. PRILOSEC [Concomitant]
     Active Substance: OMEPRAZOLE MAGNESIUM
  8. SPIRONOLACTONE. [Concomitant]
     Active Substance: SPIRONOLACTONE

REACTIONS (2)
  - Haemoglobin decreased [Unknown]
  - Ammonia increased [Unknown]

NARRATIVE: CASE EVENT DATE: 20151013
